FAERS Safety Report 23378280 (Version 1)
Quarter: 2024Q1

REPORT INFORMATION
  Report Type: Other
  Country: CN (occurrence: CN)
  Receive Date: 20240108
  Receipt Date: 20240108
  Transmission Date: 20240410
  Serious: Yes (Other)
  Sender: FDA-Public Use
  Company Number: CN-GE HEALTHCARE-2024CSU000053

PATIENT
  Age: 78 Year
  Sex: Female
  Weight: 80 kg

DRUGS (2)
  1. OMNIPAQUE [Suspect]
     Active Substance: IOHEXOL
     Indication: Arteriogram carotid
     Dosage: 70 ML (ALSO REPORTED AS 80 ML), ONCE
     Route: 042
     Dates: start: 20231221, end: 20231221
  2. OMNIPAQUE [Suspect]
     Active Substance: IOHEXOL
     Indication: Carotid artery stenosis

REACTIONS (6)
  - Stridor [Recovering/Resolving]
  - Tachypnoea [Recovering/Resolving]
  - Chest discomfort [Recovering/Resolving]
  - Vomiting [Recovering/Resolving]
  - Nausea [Recovering/Resolving]
  - Flushing [Recovering/Resolving]

NARRATIVE: CASE EVENT DATE: 20231221
